FAERS Safety Report 10161396 (Version 3)
Quarter: 2014Q3

REPORT INFORMATION
  Report Type: Spontaneous
  Country: US (occurrence: US)
  Receive Date: 20140509
  Receipt Date: 20140820
  Transmission Date: 20150326
  Serious: Yes (Other)
  Sender: FDA-Public Use
  Company Number: US-BEH-2013037779

PATIENT
  Sex: Female

DRUGS (16)
  1. GAMMAGARD [Suspect]
     Active Substance: HUMAN IMMUNOGLOBULIN G
     Dosage: NOV-2011-FEB-2012
     Route: 058
  2. TYLENOL [Concomitant]
     Active Substance: ACETAMINOPHEN
     Route: 048
  3. METHOTREXATE [Concomitant]
     Active Substance: METHOTREXATE
     Route: 058
  4. ACEBUTOLOL HCL [Concomitant]
     Active Substance: ACEBUTOLOL
     Route: 048
  5. PREDNISONE. [Concomitant]
     Active Substance: PREDNISONE
     Route: 048
  6. MAGNESIUM [Concomitant]
     Active Substance: MAGNESIUM
     Route: 048
  7. XANAX [Concomitant]
     Active Substance: ALPRAZOLAM
     Route: 048
  8. LEVALBUTEROL HCL [Concomitant]
     Active Substance: LEVALBUTEROL HYDROCHLORIDE
     Dosage: 1.25MG FOR EACH 2 ML BOTTLE
  9. KEPPRA [Concomitant]
     Active Substance: LEVETIRACETAM
     Route: 048
  10. HIZENTRA [Suspect]
     Active Substance: HUMAN IMMUNOGLOBULIN G
     Indication: PRIMARY IMMUNODEFICIENCY SYNDROME
     Dosage: MAR-2012
     Route: 042
  11. FOLIC ACID. [Concomitant]
     Active Substance: FOLIC ACID
     Route: 048
  12. CARIMUNE [Suspect]
     Active Substance: HUMAN IMMUNOGLOBULIN G
     Indication: PRIMARY IMMUNODEFICIENCY SYNDROME
     Dosage: MAY 2010- 2001
     Route: 042
  13. GAMMAGARD [Suspect]
     Active Substance: HUMAN IMMUNOGLOBULIN G
     Indication: PRIMARY IMMUNODEFICIENCY SYNDROME
     Dosage: 2011-SEP-2011
     Route: 042
  14. BENADRYL [Concomitant]
     Active Substance: DIPHENHYDRAMINE HYDROCHLORIDE
     Route: 048
  15. BENADRYL [Concomitant]
     Active Substance: DIPHENHYDRAMINE HYDROCHLORIDE
     Route: 042
  16. OXYGEN. [Concomitant]
     Active Substance: OXYGEN
     Route: 045

REACTIONS (10)
  - Heart rate increased [Not Recovered/Not Resolved]
  - Infusion site vesicles [Recovered/Resolved]
  - Convulsion [Unknown]
  - Weight decreased [Unknown]
  - Alopecia [Not Recovered/Not Resolved]
  - Autoimmune disorder [Not Recovered/Not Resolved]
  - Rash [Recovered/Resolved]
  - Meningitis aseptic [Recovered/Resolved]
  - Headache [Recovered/Resolved]
  - Pruritus [Recovered/Resolved]

NARRATIVE: CASE EVENT DATE: 2010
